FAERS Safety Report 4689912-1 (Version None)
Quarter: 2005Q2

REPORT INFORMATION
  Report Type: 
  Country: None (occurrence: None)
  Receive Date: 20050608
  Receipt Date: 20050131
  Transmission Date: 20051028
  Serious: No
  Sender: FDA-Public Use
  Company Number: 2005-BP-00069BP

PATIENT
  Age: 75 Year
  Sex: Male
  Weight: 68.9 kg

DRUGS (5)
  1. SPIRIVA [Suspect]
     Indication: CHRONIC OBSTRUCTIVE PULMONARY DISEASE
     Dosage: 18 MCG (18 MCG, QD), IH
     Route: 055
     Dates: start: 20040826
  2. ADVAIR DISKUS 100/50 [Concomitant]
  3. ALBUTEROL/ATROVENT [Concomitant]
  4. FOSAMAX [Concomitant]
  5. TERAZOSIN(TERAZOSIN) [Concomitant]

REACTIONS (3)
  - RASH [None]
  - RASH MACULO-PAPULAR [None]
  - RASH PRURITIC [None]
